FAERS Safety Report 18655188 (Version 2)
Quarter: 2021Q1

REPORT INFORMATION
  Report Type: Spontaneous
  Country: SE (occurrence: SE)
  Receive Date: 20201223
  Receipt Date: 20210128
  Transmission Date: 20210419
  Serious: Yes (Disabling)
  Sender: FDA-Public Use
  Company Number: SE-PFIZER INC-2020507251

PATIENT
  Age: 33 Year
  Sex: Female
  Weight: 58 kg

DRUGS (2)
  1. VENLAFAXINE HCL [Suspect]
     Active Substance: VENLAFAXINE HYDROCHLORIDE
     Indication: DEPRESSION
     Dosage: 150 MG, 2X/DAY (DOSE VARIED FROM 150 MG TWICE DAILY TO 37.5 MG/DAY DURING 4 YEARS TIME)
     Dates: start: 20161124
  2. VENLAFAXINE HCL [Suspect]
     Active Substance: VENLAFAXINE HYDROCHLORIDE
     Dosage: 37.5 MG, DAILY (DOSE VARIED FROM 150 MG TWICE DAILY TO 37.5 MG/DAY DURING 4 YEARS TIME)
     Dates: end: 20201101

REACTIONS (4)
  - Epistaxis [Recovering/Resolving]
  - Thrombophlebitis [Recovering/Resolving]
  - Mania [Recovering/Resolving]
  - Phlebitis [Recovering/Resolving]

NARRATIVE: CASE EVENT DATE: 20201116
